FAERS Safety Report 16791381 (Version 1)
Quarter: 2019Q3

REPORT INFORMATION
  Report Type: Spontaneous
  Country: AU (occurrence: AU)
  Receive Date: 20190910
  Receipt Date: 20190910
  Transmission Date: 20191005
  Serious: Yes (Life-Threatening, Hospitalization)
  Sender: FDA-Public Use
  Company Number: AU-PFIZER INC-2019387830

PATIENT
  Age: 47 Year
  Sex: Male

DRUGS (1)
  1. TOFACITINIB CITRATE [Suspect]
     Active Substance: TOFACITINIB CITRATE
     Dosage: UNK

REACTIONS (5)
  - Pulmonary embolism [Unknown]
  - Diarrhoea [Unknown]
  - Cardiac failure [Unknown]
  - Cardiogenic shock [Unknown]
  - Dyspnoea [Unknown]
